FAERS Safety Report 13620423 (Version 3)
Quarter: 2017Q3

REPORT INFORMATION
  Report Type: Spontaneous
  Country: CH (occurrence: CH)
  Receive Date: 20170607
  Receipt Date: 20170718
  Transmission Date: 20171127
  Serious: Yes (Other)
  Sender: FDA-Public Use
  Company Number: CH-LPDUSPRD-20170726

PATIENT
  Age: 36 Year
  Sex: Female
  Weight: 45 kg

DRUGS (7)
  1. TORADOL [Concomitant]
     Active Substance: KETOROLAC TROMETHAMINE
     Dosage: UNKNOWN
  2. MORPHINE [Concomitant]
     Active Substance: MORPHINE
     Dosage: UNKNOWN
  3. CLEXANE [Concomitant]
     Active Substance: ENOXAPARIN SODIUM
     Dosage: UNKNOWN
  4. DAFALGAN [Concomitant]
     Active Substance: ACETAMINOPHEN
     Dosage: UNKNOWN
  5. NOVALGIN [Concomitant]
     Active Substance: METAMIZOLE SODIUM
     Dosage: UNKNOWN
  6. BRUFEN [Concomitant]
     Active Substance: IBUPROFEN
     Dosage: UNKNOWN
  7. FERINJECT [Suspect]
     Active Substance: FERRIC CARBOXYMALTOSE
     Dosage: UNKNOWN
     Route: 041
     Dates: start: 20161222, end: 20161222

REACTIONS (9)
  - Exposure during pregnancy [Unknown]
  - Pruritus generalised [Unknown]
  - Arthralgia [Unknown]
  - Drug interaction [Unknown]
  - Fatigue [Unknown]
  - Nausea [Unknown]
  - Vertigo [Unknown]
  - Endometritis [Unknown]
  - Hepatitis [Unknown]

NARRATIVE: CASE EVENT DATE: 20161222
